FAERS Safety Report 15724562 (Version 7)
Quarter: 2022Q2

REPORT INFORMATION
  Report Type: Report from Study
  Country: CA (occurrence: CA)
  Receive Date: 20181214
  Receipt Date: 20220628
  Transmission Date: 20220721
  Serious: Yes (Life-Threatening, Hospitalization, Other)
  Sender: FDA-Public Use
  Company Number: CA-TESAROUBC-2018-TSO2442-CA

PATIENT

DRUGS (28)
  1. NIRAPARIB [Suspect]
     Active Substance: NIRAPARIB
     Indication: Ovarian cancer
     Dosage: 300 MG, UNK
     Route: 048
     Dates: start: 20180227, end: 20180320
  2. NIRAPARIB [Suspect]
     Active Substance: NIRAPARIB
     Dosage: 200 MG, UNK
     Route: 048
     Dates: start: 20180403, end: 20181206
  3. MCAL [Concomitant]
     Indication: Supplementation therapy
     Dosage: 500MG-800 IU
     Route: 048
     Dates: start: 20180216
  4. TELMISARTAN [Concomitant]
     Active Substance: TELMISARTAN
     Indication: Hypertension
     Dosage: 80 MG, QD
     Route: 048
     Dates: start: 20180216
  5. ATIVAN [Concomitant]
     Active Substance: LORAZEPAM
     Indication: Anxiety
     Dosage: 1 MG, QHS
     Dates: start: 20180207
  6. NICODERM CQ [Concomitant]
     Active Substance: NICOTINE
     Indication: Smoking cessation therapy
     Dosage: 7 MG, QD
     Route: 062
     Dates: start: 20180207
  7. MAGNESIUM [Concomitant]
     Active Substance: MAGNESIUM
     Indication: Supplementation therapy
     Dosage: 250 MG, BID
     Route: 048
     Dates: start: 20180129
  8. PROCHLORAZINE [Concomitant]
     Indication: Prophylaxis of nausea and vomiting
     Dosage: 10 MG, Q4-6H PRN
     Route: 048
     Dates: start: 20180120, end: 20180301
  9. PROCHLORAZINE [Concomitant]
     Indication: Nausea
     Dosage: 10 MG, Q4-6 HR PRN
     Route: 048
     Dates: start: 20180301
  10. METFORMIN [Concomitant]
     Active Substance: METFORMIN HYDROCHLORIDE
     Indication: Type 2 diabetes mellitus
     Dosage: 500 MG, QD
     Dates: start: 20180117
  11. DIPHENHYDRAMINE HYDROCHLORIDE\LIDOCAINE HYDROCHLORIDE\NYSTATIN [Concomitant]
     Active Substance: DIPHENHYDRAMINE HYDROCHLORIDE\LIDOCAINE HYDROCHLORIDE\NYSTATIN
     Indication: Stomatitis
     Dosage: 10 ML, QID PRN
     Route: 048
     Dates: start: 20180111, end: 20180218
  12. DIPHENHYDRAMINE HYDROCHLORIDE\LIDOCAINE HYDROCHLORIDE\NYSTATIN [Concomitant]
     Active Substance: DIPHENHYDRAMINE HYDROCHLORIDE\LIDOCAINE HYDROCHLORIDE\NYSTATIN
     Indication: Swollen tongue
     Dosage: 10 ML, QID PRN
     Route: 048
     Dates: start: 20180824
  13. DIPHENHYDRAMINE HYDROCHLORIDE\LIDOCAINE HYDROCHLORIDE\NYSTATIN [Concomitant]
     Active Substance: DIPHENHYDRAMINE HYDROCHLORIDE\LIDOCAINE HYDROCHLORIDE\NYSTATIN
     Indication: Oral pain
  14. SENNOSIDES [Concomitant]
     Active Substance: SENNOSIDES
     Indication: Constipation
     Dosage: 8.6 MG, QHS PRN
     Route: 048
     Dates: start: 20180109
  15. ATORVASTATIN [Concomitant]
     Active Substance: ATORVASTATIN
     Indication: Dyslipidaemia
     Dosage: 10 MG, QHS
     Route: 048
     Dates: start: 20171201
  16. BENADRYL [Concomitant]
     Active Substance: DIPHENHYDRAMINE HYDROCHLORIDE
     Indication: Urticaria
     Dosage: OINT, TID PRN
     Route: 061
     Dates: start: 20180301
  17. BENADRYL [Concomitant]
     Active Substance: DIPHENHYDRAMINE HYDROCHLORIDE
     Indication: Flushing
  18. BENADRYL [Concomitant]
     Active Substance: DIPHENHYDRAMINE HYDROCHLORIDE
     Indication: Iodine allergy
     Dosage: 50 MG, 1HR BEFORE
     Route: 048
     Dates: start: 20180220
  19. BENADRYL [Concomitant]
     Active Substance: DIPHENHYDRAMINE HYDROCHLORIDE
     Indication: Skin reaction
     Dosage: 50 MG, ONCE
     Route: 048
     Dates: start: 20181010, end: 20181010
  20. Betamethasone dipropionate w/Salicylic acid [Concomitant]
     Indication: Pruritus
     Dosage: OINT, BID
     Route: 061
     Dates: start: 201711, end: 20180314
  21. PANTOPRAZOLE SODIUM [Concomitant]
     Active Substance: PANTOPRAZOLE SODIUM
     Indication: Gastrooesophageal reflux disease
     Dosage: 40 MG, QD
     Route: 048
     Dates: start: 20180522, end: 20180630
  22. PANTOPRAZOLE SODIUM [Concomitant]
     Active Substance: PANTOPRAZOLE SODIUM
     Indication: Prophylaxis
     Dosage: 40 MG, QD
     Route: 048
     Dates: start: 20180731
  23. PREDNISONE [Concomitant]
     Active Substance: PREDNISONE
     Indication: Iodine allergy
     Dosage: 50 MG, 13 HRS 7 HR + 1 HR BEFORE PROCEDURE
     Dates: start: 20180219
  24. POLYETHYLENE GLYCOL 3350 [Concomitant]
     Active Substance: POLYETHYLENE GLYCOL 3350
     Indication: Prophylaxis
     Dosage: 17 G, QD
     Route: 048
     Dates: start: 20181130
  25. COLACE [Concomitant]
     Active Substance: DOCUSATE SODIUM
     Indication: Prophylaxis
     Dosage: 100 MG, BID
     Route: 048
     Dates: start: 20181130
  26. ZOFRAN [Concomitant]
     Active Substance: ONDANSETRON HYDROCHLORIDE
     Indication: Nausea
     Dosage: 4 MG, TID
     Route: 048
     Dates: start: 20181130, end: 20181207
  27. FILGRASTIM [Concomitant]
     Active Substance: FILGRASTIM
     Indication: Neutropenia
     Dosage: 300 ?G, QD
     Route: 058
     Dates: start: 20181209
  28. DEXAMETHASONE [Concomitant]
     Active Substance: DEXAMETHASONE
     Indication: Small intestinal obstruction
     Dosage: 8 UNK, BID
     Dates: start: 20181207

REACTIONS (1)
  - Myelodysplastic syndrome [Not Recovered/Not Resolved]

NARRATIVE: CASE EVENT DATE: 20181207
